FAERS Safety Report 9478639 (Version 2)
Quarter: 2015Q3

REPORT INFORMATION
  Report Type: Report from Study
  Country: IT (occurrence: IT)
  Receive Date: 20130827
  Receipt Date: 20150805
  Transmission Date: 20151125
  Serious: Yes (Other)
  Sender: FDA-Public Use
  Company Number: IT-INCYTE CORPORATION-2013IN001864

PATIENT
  Age: 48 Year
  Sex: Female

DRUGS (2)
  1. INC424 [Suspect]
     Active Substance: RUXOLITINIB
     Dosage: 15 MG, BID
     Route: 048
     Dates: start: 20120726
  2. INC424 [Suspect]
     Active Substance: RUXOLITINIB
     Indication: MYELOFIBROSIS
     Dosage: 40 MG, QD
     Route: 048
     Dates: start: 20120109, end: 20120726

REACTIONS (2)
  - Hepatitis B DNA assay positive [Unknown]
  - Hepatitis B [Recovered/Resolved]

NARRATIVE: CASE EVENT DATE: 20120206
